FAERS Safety Report 21335823 (Version 1)
Quarter: 2022Q3

REPORT INFORMATION
  Report Type: Spontaneous
  Country: US (occurrence: US)
  Receive Date: 20220915
  Receipt Date: 20220915
  Transmission Date: 20221026
  Serious: Yes (Other)
  Sender: FDA-Public Use
  Company Number: US-UCBSA-2022054356

PATIENT
  Sex: Male

DRUGS (3)
  1. BRIVIACT [Suspect]
     Active Substance: BRIVARACETAM
     Indication: Product used for unknown indication
     Dosage: 100 MILLIGRAM, 2X/DAY (BID)
  2. ONFI [Concomitant]
     Active Substance: CLOBAZAM
     Indication: Product used for unknown indication
  3. PHENYTOIN [Concomitant]
     Active Substance: PHENYTOIN
     Indication: Product used for unknown indication

REACTIONS (2)
  - Arrhythmia [Recovering/Resolving]
  - Anxiety [Recovering/Resolving]
